FAERS Safety Report 14442129 (Version 2)
Quarter: 2018Q2

REPORT INFORMATION
  Report Type: Spontaneous
  Country: FR (occurrence: FR)
  Receive Date: 20180125
  Receipt Date: 20180424
  Transmission Date: 20180711
  Serious: Yes (Other)
  Sender: FDA-Public Use
  Company Number: FR-TEVA-2018-FR-852662

PATIENT
  Age: 49 Year
  Sex: Male

DRUGS (3)
  1. PERFALGAN [Suspect]
     Active Substance: ACETAMINOPHEN
     Indication: PRODUCT USED FOR UNKNOWN INDICATION
     Route: 042
     Dates: start: 20171109
  2. AUGMENTIN [Suspect]
     Active Substance: AMOXICILLIN\CLAVULANATE POTASSIUM
     Indication: SINUSITIS
     Route: 048
     Dates: start: 20171030, end: 20171103
  3. IBUPROFEN. [Suspect]
     Active Substance: IBUPROFEN
     Indication: HYPERTHERMIA
     Route: 048
     Dates: start: 20171109, end: 20171109

REACTIONS (1)
  - Hepatocellular injury [Recovering/Resolving]

NARRATIVE: CASE EVENT DATE: 20171110
